FAERS Safety Report 10608843 (Version 2)
Quarter: 2015Q1

REPORT INFORMATION
  Report Type: Spontaneous
  Country: US (occurrence: US)
  Receive Date: 20141125
  Receipt Date: 20150104
  Transmission Date: 20150720
  Serious: No
  Sender: FDA-Public Use
  Company Number: US-GLAXOSMITHKLINE-US2014GSK025165

PATIENT
  Age: 61 Year
  Sex: Female

DRUGS (8)
  1. ADVAIR DISKUS [Suspect]
     Active Substance: FLUTICASONE PROPIONATE\SALMETEROL XINAFOATE
     Indication: ASTHMA
     Dosage: 1 PUFF(S), BID
     Dates: start: 2011
  2. CPAP (CONTINUOUS POSITIVE AIRWAY PRESSURE) [Concomitant]
  3. TOPAMAX [Concomitant]
     Active Substance: TOPIRAMATE
  4. CYMBALTA [Concomitant]
     Active Substance: DULOXETINE HYDROCHLORIDE
  5. KLONOPIN [Concomitant]
     Active Substance: CLONAZEPAM
  6. RANITIDINE [Concomitant]
     Active Substance: RANITIDINE\RANITIDINE HYDROCHLORIDE
  7. NEXIUM [Concomitant]
     Active Substance: ESOMEPRAZOLE MAGNESIUM
  8. NEURONTIN [Concomitant]
     Active Substance: GABAPENTIN

REACTIONS (7)
  - Dyspnoea [Not Recovered/Not Resolved]
  - Product quality issue [Unknown]
  - Inspiratory capacity decreased [Not Recovered/Not Resolved]
  - Drug administration error [Unknown]
  - Extra dose administered [Unknown]
  - Malaise [Not Recovered/Not Resolved]
  - Inhalation therapy [Not Recovered/Not Resolved]

NARRATIVE: CASE EVENT DATE: 201410
